FAERS Safety Report 18599878 (Version 2)
Quarter: 2020Q4

REPORT INFORMATION
  Report Type: Spontaneous
  Country: IT (occurrence: IT)
  Receive Date: 20201210
  Receipt Date: 20201223
  Transmission Date: 20210114
  Serious: Yes (Life-Threatening, Hospitalization, Other)
  Sender: FDA-Public Use
  Company Number: IT-MACLEODS PHARMACEUTICALS US LTD-MAC2020029360

PATIENT

DRUGS (17)
  1. LEPONEX [Suspect]
     Active Substance: CLOZAPINE
     Indication: PSYCHOTIC DISORDER
  2. PROMAZINE [Suspect]
     Active Substance: PROMAZINE
     Indication: PSYCHOTIC DISORDER
  3. CLOZAPINE. [Suspect]
     Active Substance: CLOZAPINE
     Indication: PSYCHOTIC DISORDER
     Dosage: UNK, REDUCED
     Route: 065
     Dates: start: 2018, end: 2018
  4. LORAZEPAM. [Concomitant]
     Active Substance: LORAZEPAM
     Indication: BIPOLAR DISORDER
     Dosage: 4 MILLIGRAM, TID (8 HOUR)
     Route: 030
     Dates: start: 2018
  5. HALOPERIDOL 5 MG [Suspect]
     Active Substance: HALOPERIDOL
     Indication: PSYCHOTIC DISORDER
  6. LEPONEX [Suspect]
     Active Substance: CLOZAPINE
     Indication: BIPOLAR DISORDER
     Dosage: 200 MILLIGRAM, QD
     Route: 065
     Dates: start: 2005, end: 201712
  7. LORAZEPAM. [Concomitant]
     Active Substance: LORAZEPAM
     Indication: PSYCHOTIC DISORDER
  8. CLOZAPINE. [Suspect]
     Active Substance: CLOZAPINE
     Dosage: 150 MILLIGRAM, QD
     Route: 065
     Dates: start: 201712, end: 2018
  9. VALPROIC ACID. [Concomitant]
     Active Substance: VALPROIC ACID
     Indication: PSYCHOTIC DISORDER
  10. CLOZAPINE. [Suspect]
     Active Substance: CLOZAPINE
     Indication: BIPOLAR DISORDER
     Dosage: 175 MILLIGRAM, QD, STOPPED AT DAY 20
     Route: 065
     Dates: start: 2018, end: 2018
  11. CHLORPROMAZINE. [Suspect]
     Active Substance: CHLORPROMAZINE
     Indication: BIPOLAR DISORDER
     Dosage: 1 DOSAGE FORM, ON DAY 3
     Route: 048
     Dates: start: 2018, end: 2018
  12. ARIPIPRAZOLE. [Suspect]
     Active Substance: ARIPIPRAZOLE
     Indication: PSYCHOTIC DISORDER
     Dosage: 30 MILLIGRAM, QD, TABLET
     Route: 048
     Dates: start: 2018, end: 2018
  13. HALOPERIDOL 5 MG [Suspect]
     Active Substance: HALOPERIDOL
     Indication: BIPOLAR DISORDER
     Dosage: 5 MILLIGRAM, SINGLE (1 TOTAL)
     Route: 030
     Dates: start: 201809, end: 201809
  14. PROMAZINE [Suspect]
     Active Substance: PROMAZINE
     Indication: BIPOLAR DISORDER
     Dosage: 25 MILLIGRAM, SINGLE
     Route: 030
     Dates: start: 201809, end: 201809
  15. ARIPIPRAZOLE. [Suspect]
     Active Substance: ARIPIPRAZOLE
     Indication: BIPOLAR DISORDER
     Dosage: 7.5 MILLIGRAM, BID (12 HOUR)
     Route: 030
     Dates: start: 201809, end: 2018
  16. CHLORPROMAZINE. [Suspect]
     Active Substance: CHLORPROMAZINE
     Indication: PSYCHOTIC DISORDER
  17. VALPROIC ACID. [Concomitant]
     Active Substance: VALPROIC ACID
     Indication: BIPOLAR DISORDER
     Dosage: 400 MILLIGRAM, QD
     Route: 042
     Dates: start: 2018

REACTIONS (9)
  - Hypokalaemia [Unknown]
  - Delirium [Recovered/Resolved]
  - Klebsiella infection [Recovered/Resolved]
  - Candida infection [Recovered/Resolved]
  - Pseudomonas infection [Recovered/Resolved]
  - Systemic infection [Recovered/Resolved]
  - Staphylococcal infection [Recovered/Resolved]
  - Neuroleptic malignant syndrome [Recovered/Resolved]
  - Hypomagnesaemia [Unknown]

NARRATIVE: CASE EVENT DATE: 2018
